FAERS Safety Report 5509150-X (Version None)
Quarter: 2007Q4

REPORT INFORMATION
  Report Type: 
  Country: None (occurrence: None)
  Receive Date: 20071107
  Receipt Date: 20071031
  Transmission Date: 20080405
  Serious: Yes (Other)
  Sender: FDA-Public Use
  Company Number: US-ASTRAZENECA-2007UW25348

PATIENT
  Age: 55 Year
  Sex: Female
  Weight: 86.6 kg

DRUGS (3)
  1. ARIMIDEX [Suspect]
     Indication: BREAST CANCER
     Route: 048
     Dates: start: 20040101
  2. MORPHINE [Concomitant]
  3. ANTI DEPRESSANT [Concomitant]

REACTIONS (3)
  - FALL [None]
  - UPPER LIMB FRACTURE [None]
  - UTERINE CYST [None]
